FAERS Safety Report 22752759 (Version 4)
Quarter: 2024Q1

REPORT INFORMATION
  Report Type: Spontaneous
  Country: FR (occurrence: FR)
  Receive Date: 20230726
  Receipt Date: 20240105
  Transmission Date: 20240409
  Serious: Yes (Death)
  Sender: FDA-Public Use
  Company Number: None

PATIENT
  Age: 32 Year
  Sex: Female
  Weight: 54 kg

DRUGS (6)
  1. LAMOTRIGINE [Interacting]
     Active Substance: LAMOTRIGINE
     Indication: Schizoaffective disorder
     Dosage: 100 MILLIGRAM
     Route: 048
     Dates: start: 20221020, end: 20230511
  2. QUETIAPINE [Interacting]
     Active Substance: QUETIAPINE
     Indication: Schizoaffective disorder
     Dosage: 800 MILLIGRAM, QD
     Route: 048
     Dates: start: 20220930, end: 20230511
  3. QUETIAPINE [Interacting]
     Active Substance: QUETIAPINE
     Dosage: 800 MILLIGRAM, QD
     Route: 048
     Dates: start: 202212, end: 20230511
  4. FLUOXETINE [Suspect]
     Active Substance: FLUOXETINE HYDROCHLORIDE
     Indication: Schizoaffective disorder
     Dosage: UNK
     Route: 048
     Dates: end: 20230511
  5. HALOPERIDOL DECANOATE [Suspect]
     Active Substance: HALOPERIDOL DECANOATE
     Indication: Schizoaffective disorder
     Dosage: 50 MILLIGRAM
     Route: 030
     Dates: start: 201803, end: 20230414
  6. TROPATEPINE HYDROCHLORIDE [Concomitant]
     Active Substance: TROPATEPINE HYDROCHLORIDE
     Indication: Schizoaffective disorder
     Dosage: 10 MILLIGRAM
     Route: 048
     Dates: end: 20230511

REACTIONS (2)
  - Sudden death [Fatal]
  - Drug interaction [Unknown]

NARRATIVE: CASE EVENT DATE: 20221201
